FAERS Safety Report 25652144 (Version 1)
Quarter: 2025Q3

REPORT INFORMATION
  Report Type: Report from Study
  Country: CN (occurrence: CN)
  Receive Date: 20250806
  Receipt Date: 20250806
  Transmission Date: 20251021
  Serious: Yes (Other)
  Sender: ABBVIE
  Company Number: CN-ABBVIE-6399979

PATIENT

DRUGS (1)
  1. BOTOX [Suspect]
     Active Substance: ONABOTULINUMTOXINA
     Indication: Skin wrinkling
     Route: 065
     Dates: start: 20250607, end: 20250607

REACTIONS (11)
  - Botulism [Unknown]
  - Muscular weakness [Unknown]
  - Dyskinesia [Unknown]
  - Asthenia [Unknown]
  - Choking [Unknown]
  - Throat tightness [Unknown]
  - Myalgia [Unknown]
  - Muscular weakness [Unknown]
  - Dysphonia [Unknown]
  - Hypoaesthesia [Unknown]
  - Obstructive airways disorder [Unknown]

NARRATIVE: CASE EVENT DATE: 20250601
